FAERS Safety Report 9291483 (Version 2)
Quarter: 2013Q2

REPORT INFORMATION
  Report Type: Spontaneous
  Country: JP (occurrence: JP)
  Receive Date: 20130515
  Receipt Date: 20130523
  Transmission Date: 20140414
  Serious: Yes (Other)
  Sender: FDA-Public Use
  Company Number: JP-ROCHE-1224296

PATIENT
  Age: 51 Year
  Sex: Female
  Weight: 42.04 kg

DRUGS (11)
  1. XOLAIR [Suspect]
     Indication: ASTHMA
     Route: 058
     Dates: start: 20110916, end: 201304
  2. XOLAIR [Suspect]
     Route: 058
     Dates: start: 20120817
  3. ALVESCO [Concomitant]
     Route: 065
     Dates: start: 20120106
  4. LUPRAC [Concomitant]
     Route: 065
     Dates: start: 20110311
  5. DEPAS [Concomitant]
     Route: 065
     Dates: start: 20120106
  6. HOKUNALIN [Concomitant]
     Route: 065
     Dates: start: 20110720, end: 20110930
  7. SALBUTAMOL SULFATE [Concomitant]
     Route: 065
     Dates: start: 20110805, end: 20110930
  8. SINGULAIR [Concomitant]
     Route: 065
     Dates: start: 20110311, end: 20110728
  9. ONON [Concomitant]
     Route: 065
     Dates: start: 20110729, end: 20111111
  10. UNIPHYL [Concomitant]
     Route: 065
     Dates: start: 20110311, end: 20110930
  11. SYMBICORT [Concomitant]
     Route: 065
     Dates: start: 20110916, end: 20111209

REACTIONS (3)
  - Pharyngeal oedema [Recovered/Resolved]
  - Hypersensitivity [Recovered/Resolved]
  - Dyspnoea [Unknown]
